FAERS Safety Report 5920162-4 (Version None)
Quarter: 2008Q4

REPORT INFORMATION
  Report Type: 
  Country: None (occurrence: None)
  Receive Date: 20081015
  Receipt Date: 20081015
  Transmission Date: 20090506
  Serious: Yes (Hospitalization)
  Sender: FDA-Public Use
  Company Number: None

PATIENT
  Age: 53 Year
  Sex: Male
  Weight: 65.1 kg

DRUGS (1)
  1. NAFCILLIN SODIUM [Suspect]
     Indication: INFECTION
     Dosage: 2 GM IV
     Route: 042
     Dates: start: 20080912, end: 20080915

REACTIONS (6)
  - CONSTIPATION [None]
  - DRUG SCREEN POSITIVE [None]
  - DYSPNOEA [None]
  - FLANK PAIN [None]
  - REFUSAL OF TREATMENT BY PATIENT [None]
  - RENAL FAILURE ACUTE [None]
